FAERS Safety Report 7198160-5 (Version None)
Quarter: 2010Q4

REPORT INFORMATION
  Report Type: 
  Country: None (occurrence: None)
  Receive Date: 20101227
  Receipt Date: 20101213
  Transmission Date: 20110411
  Serious: Yes (Other)
  Sender: FDA-Public Use
  Company Number: PHHY2010US74918

PATIENT
  Sex: Female
  Weight: 77.551 kg

DRUGS (7)
  1. RECLAST [Suspect]
     Indication: OSTEOPOROSIS
     Dosage: 5 MG
     Route: 042
     Dates: start: 20101026
  2. LEXAPRO [Concomitant]
  3. HYDROCHLOROTHIAZIDE [Concomitant]
  4. PROPRANOLOL [Concomitant]
  5. SYNTHROID [Concomitant]
  6. CELEBREX [Concomitant]
  7. PRAVACHOL [Concomitant]

REACTIONS (8)
  - ARTHRALGIA [None]
  - ARTHRITIS [None]
  - GAIT DISTURBANCE [None]
  - INFLUENZA LIKE ILLNESS [None]
  - JOINT SWELLING [None]
  - MYALGIA [None]
  - PYREXIA [None]
  - SYNOVITIS [None]
